FAERS Safety Report 9380240 (Version 1)
Quarter: 2013Q3

REPORT INFORMATION
  Report Type: Spontaneous
  Country: US (occurrence: None)
  Receive Date: 20130701
  Receipt Date: 20130701
  Transmission Date: 20140515
  Serious: Yes (Hospitalization, Disabling)
  Sender: FDA-Public Use
  Company Number: None

PATIENT
  Age: 74 Year
  Sex: Male
  Weight: 94.8 kg

DRUGS (1)
  1. AVASTIN [Suspect]

REACTIONS (3)
  - Chest pain [None]
  - Cerebrovascular accident [None]
  - Tremor [None]
